FAERS Safety Report 7132694-4 (Version None)
Quarter: 2010Q4

REPORT INFORMATION
  Report Type: 
  Country: None (occurrence: None)
  Receive Date: 20101117
  Receipt Date: 20101108
  Transmission Date: 20110411
  Serious: Yes (Other)
  Sender: FDA-Public Use
  Company Number: 2010US004384

PATIENT
  Sex: Female

DRUGS (14)
  1. VIBATIV [Suspect]
     Indication: CELLULITIS
     Dates: start: 20101011, end: 20101015
  2. METOPROLOL SUCCINATE [Concomitant]
  3. GLYBURIDE [Concomitant]
  4. RAMIPRIL [Concomitant]
  5. MORPHINE [Concomitant]
  6. METFORMIN HCL [Concomitant]
  7. LEVOTHYROXINE SODIUM [Concomitant]
  8. NOVOLOG [Concomitant]
  9. LASIX [Concomitant]
  10. DARVOCET [Concomitant]
  11. ASPIRIN [Concomitant]
  12. ACETAMINOPHEN [Concomitant]
  13. ALBUTEROL [Concomitant]
  14. ATROVENT [Concomitant]

REACTIONS (2)
  - ALANINE AMINOTRANSFERASE INCREASED [None]
  - ASPARTATE AMINOTRANSFERASE INCREASED [None]
